FAERS Safety Report 21728650 (Version 1)
Quarter: 2022Q4

REPORT INFORMATION
  Report Type: Spontaneous
  Country: US (occurrence: US)
  Receive Date: 20221214
  Receipt Date: 20221214
  Transmission Date: 20230113
  Serious: No
  Sender: FDA-Public Use
  Company Number: US-LEO Pharma-343103

PATIENT
  Sex: Male

DRUGS (1)
  1. ADBRY [Suspect]
     Active Substance: TRALOKINUMAB-LDRM
     Indication: Dermatitis atopic
     Dosage: INITIAL DOSAGE WAS NOT REPORTED THEN AT 300 MG EVERY TWO WEEKS
     Dates: start: 20220426

REACTIONS (6)
  - Injection site rash [Unknown]
  - Injection site pruritus [Recovered/Resolved]
  - Rash [Unknown]
  - Injection site erythema [Unknown]
  - Eczema [Unknown]
  - Eczema [Unknown]
